FAERS Safety Report 24218588 (Version 1)
Quarter: 2024Q3

REPORT INFORMATION
  Report Type: Spontaneous
  Country: CN (occurrence: CN)
  Receive Date: 20240816
  Receipt Date: 20240816
  Transmission Date: 20241017
  Serious: Yes (Life-Threatening)
  Sender: OTSUKA
  Company Number: CN-OTSUKA-2024_022330

PATIENT
  Age: 94 Year
  Sex: Female
  Weight: 55 kg

DRUGS (3)
  1. TOLVAPTAN [Suspect]
     Active Substance: TOLVAPTAN
     Indication: Hyponatraemia
     Dosage: 15 MG, BID
     Route: 048
     Dates: start: 20240718, end: 20240729
  2. PRAVASTATIN SODIUM [Concomitant]
     Active Substance: PRAVASTATIN SODIUM
     Indication: Hyperlipidaemia
     Dosage: 20 MG, QD
     Route: 048
     Dates: start: 20240719, end: 20240812
  3. PRAVASTATIN SODIUM [Concomitant]
     Active Substance: PRAVASTATIN SODIUM
     Indication: Arteriosclerosis

REACTIONS (3)
  - Hypernatraemia [Recovering/Resolving]
  - Cheilosis [Recovering/Resolving]
  - Inappropriate schedule of product administration [Unknown]

NARRATIVE: CASE EVENT DATE: 20240718
